FAERS Safety Report 6538747-3 (Version None)
Quarter: 2010Q1

REPORT INFORMATION
  Report Type: 
  Country: None (occurrence: None)
  Receive Date: 20100115
  Receipt Date: 20100106
  Transmission Date: 20100710
  Serious: Yes (Hospitalization, Congenital Anomaly, Other)
  Sender: FDA-Public Use
  Company Number: FR-ELI_LILLY_AND_COMPANY-FR201001000577

PATIENT
  Age: 1 Day

DRUGS (10)
  1. HUMALOG [Suspect]
     Indication: DIABETES MELLITUS
     Route: 064
     Dates: end: 20090928
  2. TRIATEC [Concomitant]
     Dosage: 5 MG, DAILY (1/D)
     Route: 064
     Dates: end: 20090916
  3. TAHOR [Concomitant]
     Dosage: 80 MG, DAILY (1/D)
     Route: 064
     Dates: end: 20090916
  4. METFORMIN HCL [Concomitant]
     Dosage: 3 G, DAILY (1/D)
     Route: 064
     Dates: end: 20091216
  5. LANTUS [Concomitant]
     Indication: DIABETES MELLITUS
     Route: 064
     Dates: end: 20090916
  6. ALOPURINOL [Concomitant]
     Dosage: 200 MG, DAILY (1/D)
     Route: 064
  7. PLAVIX [Concomitant]
     Dosage: 75 MG, DAILY (1/D)
     Route: 064
     Dates: end: 20090916
  8. KARDEGIC [Concomitant]
     Dosage: 160 MG, DAILY (1/D)
     Route: 064
  9. ATENOLOL [Concomitant]
     Dosage: 200 MG, DAILY (1/D)
     Route: 064
     Dates: start: 20090916
  10. OMACOR [Concomitant]
     Route: 064
     Dates: start: 20090916

REACTIONS (9)
  - BLOOD CREATININE INCREASED [None]
  - CREATININE RENAL CLEARANCE DECREASED [None]
  - DRUG EXPOSURE DURING PREGNANCY [None]
  - HYPOGLYCAEMIA [None]
  - JAUNDICE NEONATAL [None]
  - MUSCLE DISORDER [None]
  - NEONATAL RESPIRATORY DISTRESS SYNDROME [None]
  - PREMATURE BABY [None]
  - SMALL FOR DATES BABY [None]
